FAERS Safety Report 8986614 (Version 1)
Quarter: 2012Q4

REPORT INFORMATION
  Report Type: 
  Country: CH (occurrence: CH)
  Receive Date: 20121226
  Receipt Date: 20121226
  Transmission Date: 20130627
  Serious: Yes (Hospitalization)
  Sender: FDA-Public Use
  Company Number: CH-WATSON-2012-22876

PATIENT
  Age: 54 Year
  Sex: Female

DRUGS (4)
  1. CIPROFLOXACIN HYDROCHLORIDE [Suspect]
     Indication: PNEUMONIA
     Dosage: 500 mg, bid
     Route: 048
     Dates: start: 20121017
  2. METHADONE [Suspect]
     Indication: DRUG ABUSE
     Dosage: 75 mg, daily
     Route: 048
     Dates: start: 20121017, end: 20121017
  3. NALOXONE [Suspect]
     Indication: PRODUCT USED FOR UNKNOWN INDICATION
     Dosage: 0.4 mg, q1h
     Route: 042
     Dates: start: 20121017, end: 20121018
  4. TEMESTA [Concomitant]
     Indication: ANXIETY DISORDER
     Dosage: 1 mg, as necessary
     Route: 065
     Dates: start: 20121013

REACTIONS (8)
  - Torsade de pointes [Unknown]
  - Ventricular tachycardia [Unknown]
  - Electrocardiogram QT prolonged [Unknown]
  - Somnolence [Unknown]
  - Bradypnoea [Unknown]
  - Bradycardia [Unknown]
  - Accidental overdose [Unknown]
  - Overdose [Unknown]
